FAERS Safety Report 9398442 (Version 1)
Quarter: 2013Q3

REPORT INFORMATION
  Report Type: Spontaneous
  Country: US (occurrence: US)
  Receive Date: 20130712
  Receipt Date: 20130712
  Transmission Date: 20140515
  Serious: No
  Sender: FDA-Public Use
  Company Number: US-GLAXOSMITHKLINE-A1022340A

PATIENT
  Age: 26 Year
  Sex: Female
  Weight: 70.9 kg

DRUGS (4)
  1. FLOVENT [Suspect]
     Indication: ASTHMA
     Dosage: 2PUFF TWICE PER DAY
     Route: 055
     Dates: start: 20130111, end: 20130425
  2. ZYRTEC [Concomitant]
     Indication: MULTIPLE ALLERGIES
  3. MICROGESTIN [Concomitant]
     Indication: CONTRACEPTION
  4. PROAIR HFA [Concomitant]

REACTIONS (5)
  - Oedema mouth [Recovered/Resolved]
  - Swollen tongue [Recovered/Resolved]
  - Lip oedema [Recovered/Resolved]
  - Dermatitis [Recovered/Resolved]
  - Drug hypersensitivity [Recovered/Resolved]
